FAERS Safety Report 23714842 (Version 2)
Quarter: 2024Q2

REPORT INFORMATION
  Report Type: Spontaneous
  Country: US (occurrence: US)
  Receive Date: 20240406
  Receipt Date: 20240419
  Transmission Date: 20240716
  Serious: No
  Sender: FDA-Public Use
  Company Number: US-HETERO-HET2024US00911

PATIENT
  Age: 64 Year
  Sex: Female
  Weight: 58.05 kg

DRUGS (5)
  1. ATOVAQUONE [Suspect]
     Active Substance: ATOVAQUONE
     Indication: Babesiosis
     Dosage: 5 MILLILITER, BID (TWICE A DAY)
     Route: 048
     Dates: start: 20240323
  2. AZITHROMYCIN [Concomitant]
     Active Substance: AZITHROMYCIN
     Indication: Babesiosis
     Dosage: 1 DOSAGE FORM, QD (ONCE DAILY)
     Route: 048
  3. PAXLOVID [Concomitant]
     Active Substance: NIRMATRELVIR\RITONAVIR
     Indication: COVID-19
     Dosage: 3 DOSAGE FORM, BID (TWICE DAILY)
     Route: 048
  4. METOPROLOL [Concomitant]
     Active Substance: METOPROLOL
     Indication: Hypertension
     Dosage: 1 DOSAGE FORM, QD (ONCE DAILY)
     Route: 048
  5. VALACYCLOVIR [Concomitant]
     Active Substance: VALACYCLOVIR HYDROCHLORIDE
     Indication: Herpes virus infection
     Dosage: 1 DOSAGE FORM, QD (ONCE DAILY)
     Route: 048

REACTIONS (2)
  - Diarrhoea [Not Recovered/Not Resolved]
  - Product use in unapproved indication [Unknown]

NARRATIVE: CASE EVENT DATE: 20240323
